FAERS Safety Report 12539512 (Version 1)
Quarter: 2016Q3

REPORT INFORMATION
  Report Type: Spontaneous
  Country: US (occurrence: None)
  Receive Date: 20160707
  Receipt Date: 20160707
  Transmission Date: 20161109
  Serious: Yes (Other)
  Sender: FDA-Public Use
  Company Number: None

PATIENT
  Age: 39 Year
  Sex: Male
  Weight: 99.34 kg

DRUGS (2)
  1. AMOXICILLIN, 500MG [Suspect]
     Active Substance: AMOXICILLIN
     Indication: EAR INFECTION
     Route: 048
     Dates: start: 20160204, end: 20160205
  2. AMOXICILLIN, 500MG [Suspect]
     Active Substance: AMOXICILLIN
     Indication: INFECTION
     Route: 048
     Dates: start: 20160204, end: 20160205

REACTIONS (1)
  - Urticaria [None]

NARRATIVE: CASE EVENT DATE: 20160205
